FAERS Safety Report 6276099-7 (Version None)
Quarter: 2009Q3

REPORT INFORMATION
  Report Type: 
  Country: None (occurrence: None)
  Receive Date: 20090717
  Receipt Date: 20090717
  Transmission Date: 20100115
  Serious: No
  Sender: FDA-Public Use
  Company Number: None

PATIENT
  Sex: Female

DRUGS (1)
  1. COREG [Suspect]
     Dosage: 80 MG ONCE A DAY
     Dates: start: 20090403

REACTIONS (5)
  - ASTHENIA [None]
  - HYPOAESTHESIA [None]
  - JOINT SWELLING [None]
  - URINE OUTPUT DECREASED [None]
  - VISION BLURRED [None]
